FAERS Safety Report 10473863 (Version 7)
Quarter: 2015Q1

REPORT INFORMATION
  Report Type: Report from Study
  Country: US (occurrence: US)
  Receive Date: 20140924
  Receipt Date: 20150325
  Transmission Date: 20150720
  Serious: Yes (Other)
  Sender: FDA-Public Use
  Company Number: US-SA-2014SA103387

PATIENT
  Age: 74 Year
  Sex: Male

DRUGS (4)
  1. AUBAGIO [Suspect]
     Active Substance: TERIFLUNOMIDE
     Indication: MULTIPLE SCLEROSIS
     Route: 048
     Dates: end: 20140901
  2. AUBAGIO [Suspect]
     Active Substance: TERIFLUNOMIDE
     Indication: MULTIPLE SCLEROSIS
     Route: 048
     Dates: start: 20140723
  3. AUBAGIO [Suspect]
     Active Substance: TERIFLUNOMIDE
     Indication: MULTIPLE SCLEROSIS
     Route: 048
     Dates: start: 20141014, end: 20150123
  4. AMITIZA [Concomitant]
     Active Substance: LUBIPROSTONE
     Indication: PRODUCT USED FOR UNKNOWN INDICATION
     Dates: start: 201406

REACTIONS (24)
  - Nephrolithiasis [Not Recovered/Not Resolved]
  - Abdominal pain lower [Recovering/Resolving]
  - Diarrhoea [Recovering/Resolving]
  - Balance disorder [Unknown]
  - Abdominal distension [Recovering/Resolving]
  - Fatigue [Unknown]
  - Mobility decreased [Unknown]
  - Insomnia [Not Recovered/Not Resolved]
  - Abdominal pain upper [Recovering/Resolving]
  - Weight increased [Not Recovered/Not Resolved]
  - Feeling abnormal [Not Recovered/Not Resolved]
  - Nausea [Recovering/Resolving]
  - Flatulence [Recovering/Resolving]
  - Multiple sclerosis relapse [Unknown]
  - Hypersomnia [Unknown]
  - Drug dose omission [Unknown]
  - Constipation [Not Recovered/Not Resolved]
  - Abdominal pain upper [Recovering/Resolving]
  - Influenza like illness [Not Recovered/Not Resolved]
  - Discomfort [Unknown]
  - Nasal congestion [Not Recovered/Not Resolved]
  - Vomiting [Recovering/Resolving]
  - Feeling hot [Unknown]
  - Poor quality sleep [Unknown]

NARRATIVE: CASE EVENT DATE: 20140723
